FAERS Safety Report 5497333-7 (Version None)
Quarter: 2007Q4

REPORT INFORMATION
  Report Type: 
  Country: None (occurrence: None)
  Receive Date: 20071025
  Receipt Date: 20061003
  Transmission Date: 20080405
  Serious: No
  Sender: FDA-Public Use
  Company Number: A0622303A

PATIENT
  Age: 34 Year
  Sex: Male

DRUGS (8)
  1. ADVAIR DISKUS 100/50 [Suspect]
     Indication: ASTHMA
     Route: 055
     Dates: start: 19980101
  2. SINGULAIR [Concomitant]
  3. VENTOLIN [Concomitant]
  4. DOXYCYCLINE [Concomitant]
  5. FOSAMAX [Concomitant]
  6. KETOCONAZOLE [Concomitant]
  7. ALBUTEROL [Concomitant]
  8. BREVOXYL [Concomitant]

REACTIONS (1)
  - ACNE CYSTIC [None]
